FAERS Safety Report 25778881 (Version 2)
Quarter: 2025Q4

REPORT INFORMATION
  Report Type: Spontaneous
  Country: US (occurrence: US)
  Receive Date: 20250909
  Receipt Date: 20251002
  Transmission Date: 20260118
  Serious: Yes (Congenital Anomaly)
  Sender: ROCHE
  Company Number: US-ROCHE-10000382632

PATIENT
  Age: 0 Hour
  Sex: Female

DRUGS (4)
  1. OCREVUS [Suspect]
     Active Substance: OCRELIZUMAB
     Indication: Product used for unknown indication
     Route: 064
     Dates: start: 20011124
  2. SODIUM CHLORIDE [Concomitant]
     Active Substance: SODIUM CHLORIDE
  3. BUPROPION [Concomitant]
     Active Substance: BUPROPION
     Route: 048
     Dates: start: 20240707
  4. VUMERITY [Concomitant]
     Active Substance: DIROXIMEL FUMARATE

REACTIONS (2)
  - Neural tube defect [Recovered/Resolved]
  - Foetal exposure during pregnancy [Unknown]

NARRATIVE: CASE EVENT DATE: 20250708
